FAERS Safety Report 7621103-4 (Version None)
Quarter: 2011Q3

REPORT INFORMATION
  Report Type: 
  Country: None (occurrence: None)
  Receive Date: 20110719
  Receipt Date: 20100910
  Transmission Date: 20111222
  Serious: No
  Sender: FDA-Public Use
  Company Number: US-KINGPHARMUSA00001-K201001143

PATIENT
  Age: 51 Year
  Sex: Female
  Weight: 61.224 kg

DRUGS (2)
  1. LEVOXYL [Suspect]
     Dosage: 125 MCG, QD
     Route: 048
     Dates: start: 19980101, end: 20090101
  2. LEVOXYL [Suspect]
     Indication: THYROIDECTOMY
     Dosage: 100 MCG, QD
     Route: 048
     Dates: start: 20090101

REACTIONS (4)
  - EXCORIATION [None]
  - PRURITUS [None]
  - SCAB [None]
  - ERYTHEMA [None]
